FAERS Safety Report 4283089-2 (Version None)
Quarter: 2004Q1

REPORT INFORMATION
  Report Type: 
  Country: None (occurrence: None)
  Receive Date: 20040129
  Receipt Date: 20040122
  Transmission Date: 20041129
  Serious: Yes (Death)
  Sender: FDA-Public Use
  Company Number: 163-20785-03120076

PATIENT
  Age: 73 Year
  Sex: Male

DRUGS (1)
  1. THALOMID [Suspect]
     Indication: MULTIPLE MYELOMA
     Dosage: 300 MG, AT BEDTIME, ORAL
     Route: 048
     Dates: start: 20030611, end: 20031120

REACTIONS (3)
  - DIALYSIS [None]
  - NON-SMALL CELL LUNG CANCER [None]
  - RENAL FAILURE [None]
